FAERS Safety Report 7432766-0 (Version None)
Quarter: 2011Q2

REPORT INFORMATION
  Report Type: 
  Country: None (occurrence: None)
  Receive Date: 20110422
  Receipt Date: 20110415
  Transmission Date: 20111010
  Serious: Yes (Hospitalization, Other)
  Sender: FDA-Public Use
  Company Number: B0542073A

PATIENT
  Sex: Female
  Weight: 79 kg

DRUGS (3)
  1. LENALIDOMIDE [Suspect]
     Indication: MULTIPLE MYELOMA
     Dosage: 10MG PER DAY
     Route: 048
     Dates: start: 20080326
  2. PREDNISONE [Suspect]
     Indication: MULTIPLE MYELOMA
     Dosage: 158MG PER DAY
     Route: 048
     Dates: start: 20080326, end: 20080329
  3. MELPHALAN [Suspect]
     Indication: MULTIPLE MYELOMA
     Dosage: 14MG PER DAY
     Route: 048
     Dates: start: 20080326, end: 20080401

REACTIONS (5)
  - RASH [None]
  - THROMBOCYTOPENIA [None]
  - FEBRILE NEUTROPENIA [None]
  - ACCIDENTAL OVERDOSE [None]
  - ORAL HERPES [None]
